FAERS Safety Report 9325631 (Version 4)
Quarter: 2013Q4

REPORT INFORMATION
  Report Type: Report from Study
  Country: IT (occurrence: IT)
  Receive Date: 20130604
  Receipt Date: 20131113
  Transmission Date: 20140711
  Serious: Yes (Hospitalization)
  Sender: FDA-Public Use
  Company Number: IT-JNJFOC-20130521531

PATIENT
  Age: 17 Year
  Sex: Male
  Weight: 61 kg

DRUGS (3)
  1. REMICADE [Suspect]
     Indication: CROHN^S DISEASE
     Route: 042
     Dates: start: 20100112, end: 20120223
  2. HUMIRA [Concomitant]
     Route: 065
     Dates: start: 20120507
  3. AZATHIOPRINE [Concomitant]
     Route: 065

REACTIONS (1)
  - Large intestinal obstruction [Recovered/Resolved with Sequelae]
